FAERS Safety Report 8508957-4 (Version None)
Quarter: 2012Q3

REPORT INFORMATION
  Report Type: 
  Country: None (occurrence: None)
  Receive Date: 20120713
  Receipt Date: 20120709
  Transmission Date: 20120928
  Serious: Yes (Hospitalization)
  Sender: FDA-Public Use
  Company Number: US-PFIZER INC-2012152686

PATIENT
  Sex: Female
  Weight: 90 kg

DRUGS (6)
  1. FISH OIL [Concomitant]
     Dosage: UNK
  2. ADVAIR HFA [Concomitant]
     Indication: ASTHMA
     Dosage: UNK
  3. NORVASC [Suspect]
     Indication: HYPERTENSION
     Dosage: 5 MG, ONCE DAILY
     Route: 048
     Dates: start: 20110101
  4. IPRATROPIUM BROMIDE AND ALBUTEROL SULFATE [Concomitant]
     Indication: ASTHMA
     Dosage: UNK
  5. PROBIOTICS [Concomitant]
     Dosage: UNK
  6. BENAZEPRIL [Concomitant]
     Dosage: UNK

REACTIONS (1)
  - CEREBROVASCULAR ACCIDENT [None]
